FAERS Safety Report 8007967-3 (Version None)
Quarter: 2011Q4

REPORT INFORMATION
  Report Type: 
  Country: None (occurrence: None)
  Receive Date: 20111222
  Receipt Date: 20111222
  Transmission Date: 20120403
  Serious: Yes (Other)
  Sender: FDA-Public Use
  Company Number: None

PATIENT
  Age: 80 Year
  Sex: Female
  Weight: 45.3597 kg

DRUGS (1)
  1. AZITHROMYCIN [Suspect]
     Indication: RESPIRATORY DISORDER
     Dosage: 1ST DAY 2 TAB AFTER 1 PER DAY ORAL
     Route: 048
     Dates: start: 20111202, end: 20111205

REACTIONS (2)
  - DIARRHOEA [None]
  - ANORECTAL DISCOMFORT [None]
